FAERS Safety Report 16654875 (Version 4)
Quarter: 2019Q3

REPORT INFORMATION
  Report Type: Report from Study
  Country: FR (occurrence: FR)
  Receive Date: 20190801
  Receipt Date: 20190827
  Transmission Date: 20191004
  Serious: Yes (Hospitalization, Other)
  Sender: FDA-Public Use
  Company Number: FR-ROCHE-2361463

PATIENT
  Age: 63 Year
  Sex: Female
  Weight: 62.5 kg

DRUGS (6)
  1. VENETOCLAX. [Suspect]
     Active Substance: VENETOCLAX
     Indication: LYMPHOMA
     Dosage: FREQUENCY- PER DAY FROM DAY 8 OF CYCLE 1, EVERY DAY DURING 18 MONTHS?LAST DOSE ADMINISTERED ON 21/JU
     Route: 065
     Dates: start: 20190328
  2. SULFAMETHOXAZOLE/TRIMETHOPRIM [Concomitant]
     Active Substance: SULFAMETHOXAZOLE\TRIMETHOPRIM
     Indication: PROPHYLAXIS
     Route: 065
     Dates: start: 20190320
  3. TINZAPARIN SODIUM [Concomitant]
     Active Substance: TINZAPARIN SODIUM
     Indication: PROPHYLAXIS
     Route: 065
     Dates: start: 20190605
  4. ATEZOLIZUMAB. [Suspect]
     Active Substance: ATEZOLIZUMAB
     Indication: LYMPHOMA
     Dosage: LAST DOSE ADMINISTERED ON 05/JUL/2019 (1200 MG) PRIOR TO EVENT ONSET
     Route: 065
     Dates: start: 20190322
  5. OBINUTUZUMAB. [Suspect]
     Active Substance: OBINUTUZUMAB
     Indication: LYMPHOMA
     Dosage: LAST DOSE ADMINISTERED ON 04/JUL/2019 (1000 MG) PRIOR TO EVENT ONSET
     Route: 065
     Dates: start: 20190321
  6. VALACICLOVIR [Concomitant]
     Active Substance: VALACYCLOVIR HYDROCHLORIDE
     Indication: PROPHYLAXIS
     Route: 065
     Dates: start: 20190320

REACTIONS (1)
  - Haemolytic anaemia [Recovered/Resolved]

NARRATIVE: CASE EVENT DATE: 20190720
